FAERS Safety Report 10712121 (Version 3)
Quarter: 2015Q2

REPORT INFORMATION
  Report Type: Spontaneous
  Country: JP (occurrence: JP)
  Receive Date: 20150114
  Receipt Date: 20150506
  Transmission Date: 20150821
  Serious: Yes (Hospitalization, Other)
  Sender: FDA-Public Use
  Company Number: PHHY2015JP003169

PATIENT
  Age: 9 Year
  Sex: Female
  Weight: 26 kg

DRUGS (2)
  1. VOLTAREN SUP [Suspect]
     Active Substance: DICLOFENAC SODIUM
     Indication: PYREXIA
     Dosage: 25 MG, PRN
     Route: 054
     Dates: start: 20141107, end: 20141110
  2. BRUFEN [Suspect]
     Active Substance: IBUPROFEN
     Indication: PYREXIA
     Dosage: 200 MG, PRN
     Route: 048
     Dates: start: 20141107, end: 20141110

REACTIONS (24)
  - Rash [Recovered/Resolved]
  - Peripheral swelling [Recovered/Resolved]
  - Gallbladder disorder [Recovered/Resolved]
  - Peripheral swelling [Recovered/Resolved]
  - Dehydration [Unknown]
  - Lymphocyte percentage decreased [Unknown]
  - Ocular hyperaemia [Unknown]
  - Vomiting [Unknown]
  - Pain [Recovered/Resolved]
  - Skin exfoliation [Unknown]
  - Lymphadenopathy [Recovered/Resolved]
  - Pityriasis [Recovered/Resolved]
  - Hepatic function abnormal [Recovered/Resolved]
  - Flushing [Unknown]
  - Platelet count decreased [Recovered/Resolved]
  - Generalised erythema [Recovered/Resolved]
  - Erythema [Recovered/Resolved]
  - Pyrexia [Unknown]
  - Drug eruption [Recovered/Resolved]
  - Swelling [Unknown]
  - Hepatomegaly [Recovered/Resolved]
  - Renal impairment [Recovered/Resolved]
  - White blood cell count increased [Unknown]
  - Purpura [Recovered/Resolved]

NARRATIVE: CASE EVENT DATE: 20141107
